FAERS Safety Report 20630880 (Version 1)
Quarter: 2022Q1

REPORT INFORMATION
  Report Type: Spontaneous
  Country: JP (occurrence: JP)
  Receive Date: 20220324
  Receipt Date: 20220324
  Transmission Date: 20220424
  Serious: Yes (Death, Hospitalization, Other)
  Sender: FDA-Public Use
  Company Number: JP-LUPIN PHARMACEUTICALS INC.-2022-04179

PATIENT
  Age: 93 Year
  Sex: Female

DRUGS (7)
  1. METHYLPREDNISOLONE [Suspect]
     Active Substance: METHYLPREDNISOLONE
     Indication: Autoimmune haemolytic anaemia
     Dosage: 125 MG
     Route: 042
  2. HAPTOGLOBULIN (HUMAN) [Suspect]
     Active Substance: HAPTOGLOBULIN (HUMAN)
     Indication: Autoimmune haemolytic anaemia
     Dosage: UNK
     Route: 065
  3. CEFMETAZOLE [Concomitant]
     Active Substance: CEFMETAZOLE
     Indication: Cholecystitis acute
     Dosage: 2 GRAM, QD
     Route: 065
  4. MEROPENEM [Concomitant]
     Active Substance: MEROPENEM
     Indication: Product used for unknown indication
     Dosage: UNK
     Route: 065
  5. LOSARTAN [Concomitant]
     Active Substance: LOSARTAN
     Indication: Product used for unknown indication
     Dosage: 50 MG, QD
     Route: 065
  6. HYDROCHLOROTHIAZIDE [Concomitant]
     Active Substance: HYDROCHLOROTHIAZIDE
     Indication: Product used for unknown indication
     Dosage: 12.5 MG, QD
     Route: 065
  7. DONEPEZIL [Concomitant]
     Active Substance: DONEPEZIL
     Indication: Product used for unknown indication
     Dosage: 3 MG, QD
     Route: 065

REACTIONS (6)
  - Condition aggravated [Fatal]
  - Lactic acidosis [Fatal]
  - Renal impairment [Unknown]
  - Drug ineffective [Unknown]
  - Depressed level of consciousness [Unknown]
  - Blood lactate dehydrogenase increased [Unknown]
